FAERS Safety Report 10753690 (Version 1)
Quarter: 2015Q1

REPORT INFORMATION
  Report Type: Spontaneous
  Country: US (occurrence: None)
  Receive Date: 20150129
  Receipt Date: 20150129
  Transmission Date: 20150721
  Serious: Yes (Death)
  Sender: FDA-Public Use
  Company Number: 2015-US-000869

PATIENT
  Age: 90 Year
  Sex: Female

DRUGS (20)
  1. SENNA LAXATIVE (SENNOSIDE A+B) [Concomitant]
  2. METOPROLOL TARTRATE (METOPROLOL TARTRATE) [Concomitant]
  3. SUCRALFATE (SUCRALFATE) [Concomitant]
  4. MULTIVITAMINES WITH IRON (ASCORBIC ACID) [Concomitant]
  5. LYRICA [Concomitant]
     Active Substance: PREGABALIN
  6. COLACE [Concomitant]
     Active Substance: DOCUSATE SODIUM
  7. LIDOCAINE HCL (LIDOCAINE HYDROCHLORIDE) [Concomitant]
  8. OYSTER SHELL CALCIUM (CALCIUM CARBONATE) [Concomitant]
  9. MORPHINE SULFATE (MORPHINE SULFATE) [Concomitant]
     Active Substance: MORPHINE SULFATE
  10. XYREM [Suspect]
     Active Substance: SODIUM OXYBATE
     Indication: PRODUCT USED FOR UNKNOWN INDICATION
     Route: 048
     Dates: start: 200210, end: 2014
  11. OMEPRAZOLE (OMEPRAZOLE) [Concomitant]
     Active Substance: OMEPRAZOLE
  12. THERA TEARS (CARMELLOSE) [Concomitant]
  13. IPRATROPIUM/ALBUTEROL (IPRATROPIUM BROMIDE, SALBUTAMOL SULFATE) [Concomitant]
  14. DOCUSATE CALCIUM (DOCUSATE CALCIUM) [Concomitant]
  15. CRANBERRY (CRANBERRY) [Concomitant]
  16. NAMENDA [Concomitant]
     Active Substance: MEMANTINE HYDROCHLORIDE
  17. GUAIFENESIN DM (DEXTROMORPHAN HYDROBROMIDE, GUAIFENESIN) [Concomitant]
  18. LEVOTHYROXINE SODIUM (LEVOTHYROXINE SODIUM) [Concomitant]
  19. FOLIC ACID (FOLIC ACID) [Concomitant]
     Active Substance: FOLIC ACID
  20. OXYCODONE HCL (OXYCODONE HYDROCHLORIDE) [Concomitant]
     Active Substance: OXYCODONE HYDROCHLORIDE

REACTIONS (1)
  - Death [None]

NARRATIVE: CASE EVENT DATE: 20140805
